FAERS Safety Report 15604557 (Version 2)
Quarter: 2018Q4

REPORT INFORMATION
  Report Type: Spontaneous
  Country: TR (occurrence: TR)
  Receive Date: 20181110
  Receipt Date: 20181214
  Transmission Date: 20190205
  Serious: Yes (Life-Threatening, Hospitalization)
  Sender: FDA-Public Use
  Company Number: PHHY2018TR149661

PATIENT
  Age: 70 Year
  Sex: Male

DRUGS (1)
  1. PACLITAXEL. [Suspect]
     Active Substance: PACLITAXEL
     Indication: BLADDER TRANSITIONAL CELL CARCINOMA
     Dosage: UNK UNK, 2 CYCLES
     Route: 065

REACTIONS (5)
  - Pulmonary toxicity [Recovering/Resolving]
  - Bronchiectasis [Recovering/Resolving]
  - Dyspnoea [Recovering/Resolving]
  - Toxicity to various agents [Unknown]
  - Rales [Recovering/Resolving]
